FAERS Safety Report 5079494-7 (Version None)
Quarter: 2006Q3

REPORT INFORMATION
  Report Type: 
  Country: None (occurrence: None)
  Receive Date: 20060814
  Receipt Date: 20050715
  Transmission Date: 20061208
  Serious: No
  Sender: FDA-Public Use
  Company Number: US-BRISTOL-MYERS SQUIBB COMPANY-13040134

PATIENT
  Age: 63 Year
  Sex: Male
  Weight: 93 kg

DRUGS (13)
  1. GLUCOVANCE [Suspect]
     Dosage: DOSAGE FORM = GLYBURIDE 5 MG + METFORMIN 500 MG
     Dates: start: 20050513
  2. VASOTEC [Concomitant]
  3. ESKALITH CR [Concomitant]
  4. MULTI-VITAMIN [Concomitant]
  5. ASCORBIC ACID [Concomitant]
  6. VITAMIN E [Concomitant]
  7. CALCIUM GLUCONATE [Concomitant]
  8. MAGNESIUM [Concomitant]
  9. ZINC [Concomitant]
  10. THIAMINE HCL [Concomitant]
  11. VITAMIN B6 [Concomitant]
  12. VITAMIN B-12 [Concomitant]
  13. FOLIC ACID [Concomitant]

REACTIONS (1)
  - ABDOMINAL PAIN LOWER [None]
